FAERS Safety Report 8529589 (Version 3)
Quarter: 2014Q2

REPORT INFORMATION
  Report Type: Report from Study
  Country: CA (occurrence: CA)
  Receive Date: 20120425
  Receipt Date: 20140521
  Transmission Date: 20141212
  Serious: Yes (Other)
  Sender: FDA-Public Use
  Company Number: CA-ROCHE-1061171

PATIENT
  Age: 54 Year
  Sex: Female
  Weight: 61.2 kg

DRUGS (13)
  1. RITUXAN [Suspect]
     Indication: RHEUMATOID ARTHRITIS
     Route: 042
     Dates: start: 20110127
  2. RITUXAN [Suspect]
     Route: 042
     Dates: start: 20140103
  3. METHOTREXATE [Suspect]
     Indication: PRODUCT USED FOR UNKNOWN INDICATION
     Route: 065
  4. FOLIC ACID [Concomitant]
  5. DOCUSATE SODIUM [Concomitant]
  6. TYLENOL [Concomitant]
  7. ATIVAN [Concomitant]
  8. HYDROCHLOROTHIAZIDE [Concomitant]
  9. VENLAFAXINE [Concomitant]
  10. NAPROXEN [Concomitant]
  11. ACETAMINOPHEN [Concomitant]
     Indication: PREMEDICATION
     Route: 048
     Dates: start: 20110209, end: 20110209
  12. METHYLPREDNISOLONE [Concomitant]
     Indication: PREMEDICATION
     Route: 042
     Dates: start: 20110209, end: 20110209
  13. ARAVA [Concomitant]
     Route: 065

REACTIONS (4)
  - Gallbladder disorder [Not Recovered/Not Resolved]
  - Feeling cold [Unknown]
  - Weight decreased [Unknown]
  - Drug ineffective [Unknown]
